FAERS Safety Report 15423527 (Version 7)
Quarter: 2019Q4

REPORT INFORMATION
  Report Type: Spontaneous
  Country: US (occurrence: US)
  Receive Date: 20180925
  Receipt Date: 20191114
  Transmission Date: 20200122
  Serious: Yes (Other)
  Sender: FDA-Public Use
  Company Number: US-PFIZER INC-2018383734

PATIENT
  Age: 55 Year
  Sex: Female
  Weight: 141 kg

DRUGS (1)
  1. XALKORI [Suspect]
     Active Substance: CRIZOTINIB
     Indication: LUNG NEOPLASM MALIGNANT
     Dosage: 250 MG, 2X/DAY
     Route: 048
     Dates: start: 201807

REACTIONS (11)
  - Cognitive disorder [Unknown]
  - Fatigue [Unknown]
  - Vitreous floaters [Unknown]
  - Asthenia [Unknown]
  - Chronic obstructive pulmonary disease [Unknown]
  - Dyspnoea [Unknown]
  - Malaise [Unknown]
  - Feeling abnormal [Unknown]
  - Mobility decreased [Unknown]
  - Visual impairment [Unknown]
  - Photophobia [Unknown]

NARRATIVE: CASE EVENT DATE: 2018
